FAERS Safety Report 15338505 (Version 1)
Quarter: 2018Q3

REPORT INFORMATION
  Report Type: Report from Study
  Country: TH (occurrence: TH)
  Receive Date: 20180831
  Receipt Date: 20180831
  Transmission Date: 20181010
  Serious: Yes (Death, Other)
  Sender: FDA-Public Use
  Company Number: TH-TAKEDA-2018MPI009259

PATIENT
  Age: 55 Year
  Sex: Female

DRUGS (3)
  1. VELCADE [Suspect]
     Active Substance: BORTEZOMIB
     Indication: PLASMA CELL MYELOMA
     Dosage: 2.3 MG, QD
     Route: 065
     Dates: start: 20180605
  2. VELCADE [Suspect]
     Active Substance: BORTEZOMIB
     Dosage: 1.8 MG, QD
     Route: 065
     Dates: start: 20180724
  3. DARZALEX [Suspect]
     Active Substance: DARATUMUMAB
     Indication: PLASMA CELL MYELOMA
     Dosage: 1100 MG, QD
     Route: 065
     Dates: start: 20180605

REACTIONS (8)
  - Sepsis [Unknown]
  - Hypophagia [Unknown]
  - Asthenia [Not Recovered/Not Resolved]
  - Constipation [Unknown]
  - Death [Fatal]
  - Somnolence [Unknown]
  - Bradyphrenia [Unknown]
  - Diarrhoea [Unknown]

NARRATIVE: CASE EVENT DATE: 2018
